FAERS Safety Report 7924432-X (Version None)
Quarter: 2011Q4

REPORT INFORMATION
  Report Type: 
  Country: None (occurrence: None)
  Receive Date: 20111117
  Receipt Date: 20110322
  Transmission Date: 20120403
  Serious: No
  Sender: FDA-Public Use
  Company Number: US-AMGEN-USASP2011011456

PATIENT
  Age: 55 Year
  Sex: Male

DRUGS (2)
  1. ENBREL [Suspect]
     Indication: GOUT
     Dosage: 50 MG, QWK
     Dates: start: 20090301
  2. ENBREL [Suspect]
     Indication: ARTHRALGIA

REACTIONS (1)
  - ROTATOR CUFF SYNDROME [None]
